FAERS Safety Report 7023950-9 (Version None)
Quarter: 2010Q4

REPORT INFORMATION
  Report Type: 
  Country: None (occurrence: None)
  Receive Date: 20101001
  Receipt Date: 20100928
  Transmission Date: 20110411
  Serious: Yes (Hospitalization)
  Sender: FDA-Public Use
  Company Number: FR-SANOFI-AVENTIS-2010SA042065

PATIENT
  Age: 74 Year
  Sex: Male

DRUGS (7)
  1. LASIX [Suspect]
     Indication: PRODUCT USED FOR UNKNOWN INDICATION
     Route: 048
     Dates: start: 20100531
  2. PREVISCAN [Suspect]
     Indication: PRODUCT USED FOR UNKNOWN INDICATION
     Route: 048
     Dates: start: 20100611, end: 20100726
  3. AMLODIPINE [Suspect]
     Indication: PRODUCT USED FOR UNKNOWN INDICATION
     Route: 048
     Dates: start: 20100607
  4. EUPANTOL [Suspect]
     Indication: ULCER
     Route: 048
     Dates: start: 20100526, end: 20100624
  5. PARIET [Concomitant]
     Indication: ULCER
     Dates: start: 20100624
  6. CALCIPARINE [Concomitant]
     Indication: PHLEBITIS
     Route: 058
     Dates: start: 20100521, end: 20100610
  7. CALCIPARINE [Concomitant]
     Indication: PULMONARY EMBOLISM
     Route: 058
     Dates: start: 20100521, end: 20100610

REACTIONS (2)
  - PYREXIA [None]
  - TOXIC SKIN ERUPTION [None]
